FAERS Safety Report 6516157-2 (Version None)
Quarter: 2009Q4

REPORT INFORMATION
  Report Type: 
  Country: None (occurrence: None)
  Receive Date: 20091223
  Receipt Date: 20091215
  Transmission Date: 20100525
  Serious: Yes (Other)
  Sender: FDA-Public Use
  Company Number: US-JNJFOC-20091201765

PATIENT
  Sex: Female
  Weight: 48.54 kg

DRUGS (6)
  1. DURAGESIC-100 [Suspect]
     Indication: BACK PAIN
     Dosage: 3 X 100 UG/HR
     Route: 062
     Dates: start: 20050101, end: 20091118
  2. DURAGESIC-100 [Suspect]
     Indication: PAIN
     Dosage: 3 X 100 UG/HR
     Route: 062
     Dates: start: 20050101, end: 20091118
  3. DURAGESIC-100 [Suspect]
     Dosage: 3 X 100 UG/HR
     Route: 062
     Dates: start: 20091118
  4. DURAGESIC-100 [Suspect]
     Dosage: 3 X 100 UG/HR
     Route: 062
     Dates: start: 20091118
  5. HYDROCODONE BITARTRATE [Concomitant]
     Indication: PAIN
     Route: 048
  6. SOMA [Concomitant]
     Indication: MUSCLE RELAXANT THERAPY
     Route: 048
     Dates: start: 19890101

REACTIONS (7)
  - ADVERSE EVENT [None]
  - DRUG DOSE OMISSION [None]
  - FALL [None]
  - INADEQUATE ANALGESIA [None]
  - PAIN [None]
  - PRODUCT PACKAGING QUANTITY ISSUE [None]
  - ROAD TRAFFIC ACCIDENT [None]
